FAERS Safety Report 4582412-9 (Version None)
Quarter: 2005Q1

REPORT INFORMATION
  Report Type: 
  Country: None (occurrence: None)
  Receive Date: 20050211
  Receipt Date: 20050211
  Transmission Date: 20050727
  Serious: Yes (Disabling)
  Sender: FDA-Public Use
  Company Number: None

PATIENT
  Age: 79 Year
  Sex: Male

DRUGS (3)
  1. FLOMAX [Suspect]
     Indication: BENIGN PROSTATIC HYPERPLASIA
     Dosage: 0.4 MG QD PO
     Route: 048
  2. LANOXIN [Concomitant]
  3. AMIODARONE [Concomitant]

REACTIONS (9)
  - ANGLE CLOSURE GLAUCOMA [None]
  - EYE DISORDER [None]
  - FIBROSIS [None]
  - IRIS DISORDER [None]
  - IRIS EXFOLIATION [None]
  - MACULAR OEDEMA [None]
  - MYDRIASIS [None]
  - PROCEDURAL COMPLICATION [None]
  - VISUAL ACUITY REDUCED [None]
